FAERS Safety Report 5022459-1 (Version None)
Quarter: 2006Q2

REPORT INFORMATION
  Report Type: 
  Country: None (occurrence: None)
  Receive Date: 20060609
  Receipt Date: 20060601
  Transmission Date: 20061013
  Serious: Yes (Hospitalization)
  Sender: FDA-Public Use
  Company Number: AU-ROCHE-449863

PATIENT
  Age: 30 Year
  Sex: Male

DRUGS (8)
  1. VALGANCICLOVIR HCL [Suspect]
     Indication: DRUG USE FOR UNKNOWN INDICATION
     Route: 048
     Dates: end: 20051107
  2. METOPROLOL TARTRATE [Concomitant]
  3. PREDNISOLONE [Concomitant]
  4. BACTRIM [Concomitant]
  5. CALCITRIOL [Concomitant]
  6. SIROLIMUS [Concomitant]
  7. RANITIDINE [Concomitant]
  8. MYCOPHENOLATE [Concomitant]
     Dosage: DOSE WAS REDUCED TO 500 MG.

REACTIONS (3)
  - AGRANULOCYTOSIS [None]
  - MOUTH ULCERATION [None]
  - PANCYTOPENIA [None]
